FAERS Safety Report 5392253-0 (Version None)
Quarter: 2007Q3

REPORT INFORMATION
  Report Type: 
  Country: None (occurrence: None)
  Receive Date: 20070720
  Receipt Date: 20070717
  Transmission Date: 20080115
  Serious: Yes (Hospitalization)
  Sender: FDA-Public Use
  Company Number: US-SANOFI-SYNTHELABO-D01200703763

PATIENT
  Sex: Male
  Weight: 5.6 kg

DRUGS (10)
  1. DEXTROSE 5% [Concomitant]
  2. ASPIRIN [Concomitant]
  3. CAPTOPRIL [Concomitant]
  4. DIGOXIN [Concomitant]
  5. ALBUTEROL [Concomitant]
  6. RANITIDINE HCL [Concomitant]
  7. FUROSEMIDE [Concomitant]
  8. ZANTAC 150 [Concomitant]
  9. CLOPIDOGREL [Suspect]
     Indication: HEART DISEASE CONGENITAL
     Dosage: 0.2 MG/KG/DAY
     Route: 048
     Dates: start: 20070309, end: 20070531
  10. CLOPIDOGREL [Suspect]
     Dosage: 0.2 MG/KG/DAY
     Route: 048
     Dates: start: 20070607

REACTIONS (2)
  - AORTIC STENOSIS [None]
  - LETHARGY [None]
